FAERS Safety Report 9340900 (Version 1)
Quarter: 2013Q2

REPORT INFORMATION
  Report Type: Spontaneous
  Country: US (occurrence: US)
  Receive Date: 20130610
  Receipt Date: 20130610
  Transmission Date: 20140414
  Serious: No
  Sender: FDA-Public Use
  Company Number: US-009507513-1305USA010073

PATIENT
  Age: 9 Year
  Sex: Male

DRUGS (2)
  1. CLARITIN [Suspect]
     Indication: PRODUCT USED FOR UNKNOWN INDICATION
     Dosage: UNK UNK, UNKNOWN
     Route: 048
     Dates: start: 2013
  2. CLARITIN [Suspect]
     Dosage: 20 MG, ONCE
     Route: 048
     Dates: start: 20130503

REACTIONS (2)
  - Overdose [Unknown]
  - Drug effect decreased [Unknown]
